FAERS Safety Report 14982326 (Version 1)
Quarter: 2018Q2

REPORT INFORMATION
  Report Type: Spontaneous
  Country: US (occurrence: US)
  Receive Date: 20180607
  Receipt Date: 20180607
  Transmission Date: 20180711
  Serious: No
  Sender: FDA-Public Use
  Company Number: US-TRIS PHARMA, INC-2018TRISPO00422

PATIENT

DRUGS (1)
  1. DYANAVEL XR [Suspect]
     Active Substance: AMPHETAMINE
     Indication: ATTENTION DEFICIT/HYPERACTIVITY DISORDER
     Dosage: 4 ML, ONCE A DAY (SINCE ONE AND HALF YEAR)
     Route: 065

REACTIONS (1)
  - Tic [Not Recovered/Not Resolved]
